FAERS Safety Report 4557879-2 (Version None)
Quarter: 2005Q1

REPORT INFORMATION
  Report Type: 
  Country: None (occurrence: None)
  Receive Date: 20050121
  Receipt Date: 20031017
  Transmission Date: 20050727
  Serious: Yes (Other)
  Sender: FDA-Public Use
  Company Number: US-BRISTOL-MYERS SQUIBB COMPANY-12413118

PATIENT
  Age: 52 Year
  Sex: Male

DRUGS (5)
  1. SERZONE [Suspect]
     Dosage: 100MG TABLETS; 1 TO 4 TABS AT HS. STOPPED DEC-2000, RESTARTED JAN-2001, + STOP MAR-2001.
     Route: 048
     Dates: start: 20000801, end: 20010301
  2. LIPITOR [Suspect]
     Dosage: ON 10MG/DAY AS OF 06-FEB-2000. STOPPED DEC-2000, RESTARTED JAN-2001, + STOP MAR-2001.
     Dates: end: 20010301
  3. GABAPENTIN [Suspect]
     Indication: INSOMNIA
     Dosage: 100MG,300MG,800MG CAPS.1-3 HS-TID PRN.STOP 12/00,RESTART 1/01, STOP 3/01;RESTART 5/01.
     Route: 048
  4. GABAPENTIN [Suspect]
     Indication: ANXIETY
     Dosage: 100MG,300MG,800MG CAPS.1-3 HS-TID PRN.STOP 12/00,RESTART 1/01, STOP 3/01;RESTART 5/01.
     Route: 048
  5. GABAPENTIN [Suspect]
     Indication: IRRITABILITY
     Dosage: 100MG,300MG,800MG CAPS.1-3 HS-TID PRN.STOP 12/00,RESTART 1/01, STOP 3/01;RESTART 5/01.
     Route: 048

REACTIONS (1)
  - HEPATITIS [None]
